FAERS Safety Report 8755773 (Version 2)
Quarter: 2012Q4

REPORT INFORMATION
  Report Type: 
  Country: US (occurrence: US)
  Receive Date: 20120827
  Receipt Date: 20120919
  Transmission Date: 20130627
  Serious: Yes (Disabling, Other)
  Sender: FDA-Public Use
  Company Number: US-ROCHE-1104015

PATIENT

DRUGS (4)
  1. RITUXAN [Suspect]
     Indication: DERMATOMYOSITIS
  2. RITUXAN [Suspect]
     Indication: B-CELL LYMPHOMA
  3. CELLCEPT [Suspect]
     Indication: DERMATOMYOSITIS
  4. PLAQUENIL [Suspect]
     Indication: DERMATOMYOSITIS

REACTIONS (4)
  - B-cell lymphoma [Unknown]
  - Skin disorder [Unknown]
  - Muscle disorder [Unknown]
  - Dermatomyositis [Unknown]
